FAERS Safety Report 8983825 (Version 3)
Quarter: 2013Q2

REPORT INFORMATION
  Report Type: Spontaneous
  Country: JP (occurrence: JP)
  Receive Date: 20121224
  Receipt Date: 20130426
  Transmission Date: 20140414
  Serious: Yes (Death, Other)
  Sender: FDA-Public Use
  Company Number: JP-ROCHE-1171993

PATIENT
  Age: 80 Year
  Sex: Female

DRUGS (4)
  1. DENOSINE [Suspect]
     Indication: CYTOMEGALOVIRUS ENTERITIS
     Route: 042
  2. AZANIN [Suspect]
     Indication: COLITIS ULCERATIVE
     Route: 048
  3. PREDNISOLONE [Suspect]
     Indication: COLITIS ULCERATIVE
     Dosage: TITRATED DOWN TO 15 MG
     Route: 065
  4. FOSFLUCONAZOLE [Suspect]
     Indication: PRODUCT USED FOR UNKNOWN INDICATION
     Route: 065

REACTIONS (4)
  - Cerebral haemorrhage [Fatal]
  - Aspergillus infection [Fatal]
  - Cerebral artery embolism [Unknown]
  - Cytomegalovirus enteritis [Unknown]
